FAERS Safety Report 8916820 (Version 2)
Quarter: 2012Q4

REPORT INFORMATION
  Report Type: 
  Country: US (occurrence: US)
  Receive Date: 20121120
  Receipt Date: 20121203
  Transmission Date: 20130627
  Serious: Yes (Hospitalization, Other)
  Sender: FDA-Public Use
  Company Number: US-PFIZER INC-2012287788

PATIENT
  Age: 49 Year
  Sex: Male

DRUGS (2)
  1. CELEBREX [Suspect]
     Dosage: UNK
     Dates: start: 201211
  2. COUMADIN [Suspect]
     Dosage: UNK

REACTIONS (1)
  - Gastrointestinal haemorrhage [Unknown]
